FAERS Safety Report 25923224 (Version 1)
Quarter: 2025Q4

REPORT INFORMATION
  Report Type: Spontaneous
  Country: US (occurrence: US)
  Receive Date: 20251015
  Receipt Date: 20251015
  Transmission Date: 20260118
  Serious: Yes (Other)
  Sender: SUNOVION
  Company Number: US-SMPA-2025SPA012961

PATIENT
  Sex: Male

DRUGS (2)
  1. ORGOVYX [Suspect]
     Active Substance: RELUGOLIX
     Indication: Prostate cancer
     Dosage: 4.5 MONTH ON ORGOVYX
     Route: 048
  2. LUPRON [Suspect]
     Active Substance: LEUPROLIDE ACETATE
     Indication: Product used for unknown indication

REACTIONS (13)
  - Suicidal ideation [Unknown]
  - Mental impairment [Unknown]
  - Apathy [Unknown]
  - Anorgasmia [Unknown]
  - Lethargy [Unknown]
  - Laziness [Unknown]
  - Nasopharyngitis [Unknown]
  - Chills [Unknown]
  - Alopecia [Unknown]
  - Insomnia [Unknown]
  - Loss of libido [Unknown]
  - Depression [Unknown]
  - Hot flush [Unknown]
